FAERS Safety Report 22617202 (Version 1)
Quarter: 2023Q2

REPORT INFORMATION
  Report Type: Report from Study
  Country: US (occurrence: US)
  Receive Date: 20230620
  Receipt Date: 20230620
  Transmission Date: 20230722
  Serious: Yes (Other)
  Sender: FDA-Public Use
  Company Number: US-ABBVIE-5295297

PATIENT
  Age: 9 Year
  Sex: Female

DRUGS (1)
  1. CREON [Suspect]
     Active Substance: PANCRELIPASE AMYLASE\PANCRELIPASE LIPASE\PANCRELIPASE PROTEASE
     Indication: Product used for unknown indication
     Route: 048

REACTIONS (5)
  - Appendicectomy [Recovering/Resolving]
  - Splenectomy [Recovering/Resolving]
  - Cholecystectomy [Recovering/Resolving]
  - Pancreas islet cell transplant [Recovering/Resolving]
  - Pancreatectomy [Recovering/Resolving]

NARRATIVE: CASE EVENT DATE: 20230201
